FAERS Safety Report 9728079 (Version 1)
Quarter: 2013Q4

REPORT INFORMATION
  Report Type: Report from Study
  Country: US (occurrence: US)
  Receive Date: 20131204
  Receipt Date: 20131204
  Transmission Date: 20140711
  Serious: Yes (Hospitalization)
  Sender: FDA-Public Use
  Company Number: PHHY2013US136284

PATIENT
  Age: 60 Year
  Sex: Female

DRUGS (9)
  1. BASILIXIMAB [Suspect]
     Indication: RENAL TRANSPLANT
     Dosage: 20 MG, UNK
     Route: 042
     Dates: start: 20130624
  2. BASILIXIMAB [Suspect]
     Dosage: 20 MG, UNK
     Route: 042
     Dates: start: 20130628
  3. MYCOPHENOLATE MOFETIL [Suspect]
     Indication: RENAL TRANSPLANT
     Dosage: 1000 MG, BID
     Route: 048
     Dates: start: 20130624
  4. NIFEDIPINE [Suspect]
     Indication: HYPERTENSION
     Dosage: 60 MG, BID
     Route: 048
     Dates: start: 20130624
  5. NIFEDIPINE [Suspect]
     Dosage: 30 MG, BID
  6. PREDNISONE [Concomitant]
     Indication: RENAL TRANSPLANT
     Dosage: 20 MG, DAILY
     Dates: start: 20130624
  7. TENEX [Concomitant]
     Dosage: UNK UKN, UNK
     Dates: start: 20130627
  8. LOSARTAN [Concomitant]
  9. CATAPRES                                /UNK/ [Concomitant]

REACTIONS (3)
  - Hypothermia [Recovering/Resolving]
  - Renal tubular necrosis [Unknown]
  - Hypotension [Recovering/Resolving]
